FAERS Safety Report 9414511 (Version 1)
Quarter: 2013Q3

REPORT INFORMATION
  Report Type: Spontaneous
  Country: DE (occurrence: DE)
  Receive Date: 20130723
  Receipt Date: 20130723
  Transmission Date: 20140515
  Serious: Yes (Other)
  Sender: FDA-Public Use
  Company Number: DE-GLAXOSMITHKLINE-D0080582A

PATIENT
  Age: 38 Year
  Sex: Female
  Weight: 68 kg

DRUGS (6)
  1. VIANI 50-250 DISKUS [Suspect]
     Indication: ASTHMA
     Dosage: 300MCG TWICE PER DAY
     Route: 055
  2. BEROTEC [Concomitant]
     Indication: ASTHMA
     Route: 055
  3. OTOBACID [Concomitant]
     Indication: EAR INFECTION
     Route: 001
     Dates: start: 20091203, end: 20091213
  4. FOLIC ACID [Concomitant]
     Indication: PROPHYLAXIS OF NEURAL TUBE DEFECT
     Route: 048
  5. ERYHEXAL [Concomitant]
     Indication: CHLAMYDIAL INFECTION
     Route: 048
     Dates: start: 20091215, end: 20091221
  6. MONAPAX [Concomitant]
     Indication: COUGH
     Route: 048

REACTIONS (4)
  - Gestational diabetes [Unknown]
  - Amniotic fluid volume increased [Unknown]
  - Vomiting in pregnancy [Unknown]
  - Exposure during pregnancy [Unknown]
